FAERS Safety Report 8579775-6 (Version None)
Quarter: 2012Q3

REPORT INFORMATION
  Report Type: 
  Country: None (occurrence: None)
  Receive Date: 20120808
  Receipt Date: 20120727
  Transmission Date: 20120928
  Serious: No
  Sender: FDA-Public Use
  Company Number: US-ASTRAZENECA-2012SE53477

PATIENT
  Age: 54 Year
  Sex: Female
  Weight: 56.7 kg

DRUGS (3)
  1. IRON [Concomitant]
     Indication: ANAEMIA
  2. NEXIUM [Suspect]
     Indication: GASTROOESOPHAGEAL REFLUX DISEASE
     Route: 048
     Dates: start: 20120726
  3. LOVAZA [Concomitant]
     Indication: BLOOD CHOLESTEROL ABNORMAL

REACTIONS (1)
  - SWELLING [None]
